FAERS Safety Report 7060871-X (Version None)
Quarter: 2010Q4

REPORT INFORMATION
  Report Type: 
  Country: None (occurrence: None)
  Receive Date: 20101025
  Receipt Date: 20101015
  Transmission Date: 20110411
  Serious: Yes (Other)
  Sender: FDA-Public Use
  Company Number: US-ABBOTT-10P-163-0678645-00

PATIENT
  Sex: Male
  Weight: 95.34 kg

DRUGS (8)
  1. HUMIRA [Suspect]
     Indication: RHEUMATOID ARTHRITIS
     Dates: start: 20050101, end: 20051201
  2. HUMIRA [Suspect]
     Dates: start: 20060601
  3. ARAVA [Concomitant]
     Indication: RHEUMATOID ARTHRITIS
  4. CELEBREX [Concomitant]
     Indication: RHEUMATOID ARTHRITIS
  5. SINGULAIR [Concomitant]
     Indication: HYPERSENSITIVITY
  6. NASONEX [Concomitant]
     Indication: HYPERSENSITIVITY
  7. DIOVAN [Concomitant]
     Indication: HYPERTENSION
  8. VYTORIN [Concomitant]
     Indication: BLOOD CHOLESTEROL INCREASED
     Dosage: 10/40 MILLIGRAMS

REACTIONS (8)
  - ABDOMINAL DISTENSION [None]
  - DECREASED APPETITE [None]
  - DEHYDRATION [None]
  - FEELING COLD [None]
  - HYPERHIDROSIS [None]
  - HYPERSOMNIA [None]
  - PAIN [None]
  - RASH [None]
